FAERS Safety Report 24121507 (Version 2)
Quarter: 2024Q3

REPORT INFORMATION
  Report Type: Report from Study
  Country: SG (occurrence: SG)
  Receive Date: 20240722
  Receipt Date: 20240726
  Transmission Date: 20241017
  Serious: Yes (Life-Threatening, Hospitalization)
  Sender: EISAI
  Company Number: SG-Eisai-EC-2024-169903

PATIENT
  Age: 53 Year
  Sex: Female

DRUGS (4)
  1. LENVATINIB [Suspect]
     Active Substance: LENVATINIB
     Indication: Hormone refractory breast cancer
     Route: 048
     Dates: start: 20240617, end: 20240707
  2. LETROZOLE [Suspect]
     Active Substance: LETROZOLE
     Indication: Hormone refractory breast cancer
     Route: 048
     Dates: start: 20240617
  3. PEMBROLIZUMAB [Suspect]
     Active Substance: PEMBROLIZUMAB
     Indication: Hormone refractory breast cancer
     Route: 042
     Dates: start: 20240409
  4. ACETAMINOPHEN [Concomitant]
     Active Substance: ACETAMINOPHEN
     Dates: start: 20240707, end: 20240707

REACTIONS (3)
  - Appendicitis [Recovered/Resolved]
  - Hypoglycaemia [Recovered/Resolved with Sequelae]
  - Blood creatinine increased [Recovered/Resolved with Sequelae]

NARRATIVE: CASE EVENT DATE: 20240707
